FAERS Safety Report 10145409 (Version 1)
Quarter: 2014Q2

REPORT INFORMATION
  Report Type: Spontaneous
  Country: US (occurrence: US)
  Receive Date: 20140501
  Receipt Date: 20140501
  Transmission Date: 20141212
  Serious: No
  Sender: FDA-Public Use
  Company Number: US-BIOGENIDEC-2014BI038411

PATIENT
  Age: 64 Year
  Sex: Female
  Weight: 47 kg

DRUGS (9)
  1. TECFIDERA [Suspect]
     Indication: MULTIPLE SCLEROSIS
     Route: 048
     Dates: start: 20140203, end: 201403
  2. ASPIRIN [Concomitant]
  3. BACLOFEN [Concomitant]
  4. GABAPENTIN [Concomitant]
  5. LANSOPRAZOLE [Concomitant]
  6. NIFEDIPINE [Concomitant]
  7. OXYBUTYNIN [Concomitant]
  8. PHENYTOIN [Concomitant]
  9. SIMVASTATIN [Concomitant]

REACTIONS (3)
  - Gastric disorder [Unknown]
  - Weight decreased [Unknown]
  - Pruritus [Recovered/Resolved]
